FAERS Safety Report 7723273-6 (Version None)
Quarter: 2011Q3

REPORT INFORMATION
  Report Type: 
  Country: None (occurrence: None)
  Receive Date: 20110901
  Receipt Date: 20110830
  Transmission Date: 20111222
  Serious: Yes (Other)
  Sender: FDA-Public Use
  Company Number: CH-PFIZER INC-2011201681

PATIENT
  Age: 49 Year
  Sex: Male
  Weight: 70 kg

DRUGS (3)
  1. ATORVASTATIN CALCIUM [Suspect]
     Dosage: 40 MG, 1X/DAY
     Route: 048
     Dates: start: 20030101, end: 20100101
  2. CRESTOR [Suspect]
     Dosage: 20 MG, 1X/DAY
     Route: 048
     Dates: start: 20100101, end: 20110601
  3. EZETIMIBE [Suspect]
     Dosage: 10 MG, 1X/DAY
     Route: 048
     Dates: start: 20040101, end: 20110601

REACTIONS (3)
  - SENSORY LOSS [None]
  - ERECTILE DYSFUNCTION [None]
  - POLYNEUROPATHY [None]
